FAERS Safety Report 17534277 (Version 1)
Quarter: 2020Q1

REPORT INFORMATION
  Report Type: Spontaneous
  Country: US (occurrence: US)
  Receive Date: 20200312
  Receipt Date: 20200312
  Transmission Date: 20200409
  Serious: Yes (Other)
  Sender: FDA-Public Use
  Company Number: US-METUCHEN-STN-2020-0103

PATIENT
  Sex: Male

DRUGS (1)
  1. STENDRA [Suspect]
     Active Substance: AVANAFIL
     Indication: PRODUCT USED FOR UNKNOWN INDICATION
     Dosage: 100MG
     Route: 048

REACTIONS (3)
  - Blood pressure decreased [Unknown]
  - Coma [Unknown]
  - Dizziness [Unknown]
